FAERS Safety Report 9049410 (Version 2)
Quarter: 2013Q1

REPORT INFORMATION
  Report Type: Spontaneous
  Country: AU (occurrence: AU)
  Receive Date: 20130205
  Receipt Date: 20130213
  Transmission Date: 20140127
  Serious: Yes (Hospitalization, Other)
  Sender: FDA-Public Use
  Company Number: PHHY2013AU009077

PATIENT
  Sex: Male

DRUGS (3)
  1. GLIVEC [Suspect]
     Indication: CHRONIC MYELOID LEUKAEMIA
     Dosage: 600 MG, UNK
     Route: 048
     Dates: start: 20030101
  2. PANADOL OSTEO [Concomitant]
     Indication: OSTEOARTHRITIS
  3. AVANTAR [Concomitant]

REACTIONS (9)
  - Myasthenia gravis [Not Recovered/Not Resolved]
  - Mobility decreased [Unknown]
  - Gait disturbance [Unknown]
  - Sciatica [Unknown]
  - Pain in extremity [Unknown]
  - Arthralgia [Unknown]
  - Spinal osteoarthritis [Unknown]
  - Nerve root compression [Unknown]
  - Differential white blood cell count abnormal [Unknown]
